FAERS Safety Report 5021998-7 (Version None)
Quarter: 2006Q2

REPORT INFORMATION
  Report Type: 
  Country: None (occurrence: None)
  Receive Date: 20060605
  Receipt Date: 20060518
  Transmission Date: 20061013
  Serious: Yes (Hospitalization)
  Sender: FDA-Public Use
  Company Number: US200605004113

PATIENT
  Age: 56 Year
  Sex: Female

DRUGS (1)
  1. PROZAC [Suspect]
     Dosage: 60 MG, DAILY (1/D), ORAL
     Route: 048
     Dates: start: 19900101

REACTIONS (2)
  - ARTERIAL OCCLUSIVE DISEASE [None]
  - DRUG INTERACTION [None]
